FAERS Safety Report 10298808 (Version 1)
Quarter: 2014Q3

REPORT INFORMATION
  Report Type: Spontaneous
  Country: US (occurrence: US)
  Receive Date: 20140711
  Receipt Date: 20140711
  Transmission Date: 20150326
  Serious: Yes (Congenital Anomaly, Other)
  Sender: FDA-Public Use
  Company Number: PHHY2014US084924

PATIENT
  Sex: Male

DRUGS (2)
  1. FLEXERIL [Suspect]
     Active Substance: CYCLOBENZAPRINE HYDROCHLORIDE
     Dosage: (MATERNAL DOSE: 10 MG Q8H)
     Route: 064
  2. PARACETAMOL [Suspect]
     Active Substance: ACETAMINOPHEN
     Route: 064

REACTIONS (11)
  - Ventricular septal defect [Recovered/Resolved]
  - Right ventricular hypertrophy [Recovered/Resolved]
  - Atrial septal defect [Recovered/Resolved]
  - Cardiac septal defect residual shunt [Recovered/Resolved]
  - Persistent foetal circulation [Recovered/Resolved]
  - Tachypnoea [Recovered/Resolved]
  - Tricuspid valve incompetence [Recovered/Resolved]
  - Respiratory distress [Recovered/Resolved]
  - Foetal exposure during pregnancy [Unknown]
  - Cardiomegaly [Recovered/Resolved]
  - Use of accessory respiratory muscles [Recovered/Resolved]
